FAERS Safety Report 7254162-1 (Version None)
Quarter: 2011Q1

REPORT INFORMATION
  Report Type: 
  Country: None (occurrence: None)
  Receive Date: 20110129
  Receipt Date: 20100420
  Transmission Date: 20110831
  Serious: Yes (Other)
  Sender: FDA-Public Use
  Company Number: US-ABBOTT-10P-163-0626290-00

PATIENT
  Sex: Female
  Weight: 79.45 kg

DRUGS (9)
  1. ENTERCORT FOR CROHN'S [Concomitant]
     Indication: PRODUCT USED FOR UNKNOWN INDICATION
  2. LEFLUNOMIDE [Concomitant]
     Indication: CROHN'S DISEASE
     Route: 048
     Dates: start: 20080301
  3. FOSAMAX [Concomitant]
     Indication: OSTEOPOROSIS
  4. HUMIRA [Suspect]
     Indication: RHEUMATOID ARTHRITIS
     Dates: start: 20080301
  5. VERAPAMIL [Concomitant]
     Indication: HYPERTENSION
  6. HUMIRA [Suspect]
     Indication: CROHN'S DISEASE
  7. HUMIRA [Suspect]
  8. LEFLUNOMIDE [Concomitant]
     Indication: RHEUMATOID ARTHRITIS
  9. METOPROLOL [Concomitant]
     Indication: HYPERTENSION

REACTIONS (7)
  - MALIGNANT MELANOMA [None]
  - URINARY TRACT INFECTION [None]
  - SQUAMOUS CELL CARCINOMA [None]
  - CROHN'S DISEASE [None]
  - RHEUMATOID ARTHRITIS [None]
  - BASAL CELL CARCINOMA [None]
  - SINUSITIS [None]
